FAERS Safety Report 15653533 (Version 5)
Quarter: 2019Q4

REPORT INFORMATION
  Report Type: Report from Study
  Country: US (occurrence: US)
  Receive Date: 20181124
  Receipt Date: 20191111
  Transmission Date: 20200122
  Serious: Yes (Other)
  Sender: FDA-Public Use
  Company Number: PHHY2018US161796

PATIENT
  Age: 56 Year
  Sex: Female

DRUGS (1)
  1. GILENYA [Suspect]
     Active Substance: FINGOLIMOD HYDROCHLORIDE
     Indication: MULTIPLE SCLEROSIS
     Dosage: UNK, QD
     Route: 048

REACTIONS (19)
  - Bronchitis viral [Recovered/Resolved]
  - Weight increased [Recovered/Resolved]
  - Upper respiratory tract infection [Recovered/Resolved]
  - Salivary gland mucocoele [Unknown]
  - Craniocerebral injury [Unknown]
  - Dizziness [Recovered/Resolved]
  - Flank pain [Unknown]
  - Lentigo [Unknown]
  - White blood cell count decreased [Unknown]
  - Acrochordon [Unknown]
  - Lymphocyte count decreased [Unknown]
  - Headache [Unknown]
  - Skin laceration [Recovered/Resolved]
  - Seborrhoeic keratosis [Unknown]
  - Sinus bradycardia [Recovered/Resolved]
  - Blood bilirubin decreased [Unknown]
  - Frequent bowel movements [Recovered/Resolved]
  - Pain in jaw [Unknown]
  - Musculoskeletal chest pain [Unknown]

NARRATIVE: CASE EVENT DATE: 20180829
